FAERS Safety Report 5380649-2 (Version None)
Quarter: 2007Q3

REPORT INFORMATION
  Report Type: 
  Country: None (occurrence: None)
  Receive Date: 20070706
  Receipt Date: 20070629
  Transmission Date: 20080115
  Serious: Yes (Death, Life-Threatening, Hospitalization)
  Sender: FDA-Public Use
  Company Number: CI-GILEAD-2007-0012450

PATIENT
  Sex: Female
  Weight: 3 kg

DRUGS (2)
  1. EMTRICITABINE/TENOFOVIR DISOPROXIL FUMARATE [Suspect]
     Route: 064
     Dates: start: 20070428, end: 20070428
  2. NEVIRAPINE [Concomitant]
     Route: 064
     Dates: start: 20070428, end: 20070428

REACTIONS (1)
  - GASTROINTESTINAL OBSTRUCTION [None]
